FAERS Safety Report 23420111 (Version 1)
Quarter: 2024Q1

REPORT INFORMATION
  Report Type: Other
  Country: FR (occurrence: FR)
  Receive Date: 20240119
  Receipt Date: 20240119
  Transmission Date: 20240410
  Serious: Yes (Hospitalization)
  Sender: FDA-Public Use
  Company Number: None

PATIENT

DRUGS (4)
  1. VALACYCLOVIR HYDROCHLORIDE [Suspect]
     Active Substance: VALACYCLOVIR HYDROCHLORIDE
     Indication: Prophylaxis
     Dosage: 1 GRAM, QD
     Route: 048
     Dates: end: 20231023
  2. BACTRIM [Suspect]
     Active Substance: SULFAMETHOXAZOLE\TRIMETHOPRIM
     Indication: Prophylaxis
     Dosage: UNK
     Route: 048
     Dates: start: 20180101, end: 20231023
  3. ISAVUCONAZOLE [Suspect]
     Active Substance: ISAVUCONAZOLE
     Indication: Bronchopulmonary aspergillosis
     Dosage: 300 MILLIGRAM, QD
     Route: 048
     Dates: start: 20231001, end: 20231024
  4. BENDAMUSTINE HYDROCHLORIDE MONOHYDRATE [Suspect]
     Active Substance: BENDAMUSTINE HYDROCHLORIDE MONOHYDRATE
     Indication: Follicular lymphoma
     Dosage: 117.5 MILLIGRAM, 4 WEEKS
     Route: 042
     Dates: start: 20230731, end: 20231018

REACTIONS (1)
  - Cholestatic liver injury [Recovered/Resolved]

NARRATIVE: CASE EVENT DATE: 20231023
